FAERS Safety Report 4378849-3 (Version None)
Quarter: 2004Q2

REPORT INFORMATION
  Report Type: 
  Country: None (occurrence: None)
  Receive Date: 20040601
  Receipt Date: 20040128
  Transmission Date: 20050107
  Serious: No
  Sender: FDA-Public Use
  Company Number: WAES  0401USA02100

PATIENT
  Age: 68 Year
  Sex: Female

DRUGS (5)
  1. ZETIA [Suspect]
     Indication: HYPERCHOLESTEROLAEMIA
     Dosage: 10 MG/DAILY/PO
     Route: 048
     Dates: start: 20030901, end: 20040121
  2. EVISTA [Concomitant]
  3. FOSAMAX [Concomitant]
  4. PAXIL [Concomitant]
  5. CLONAZEPAM [Concomitant]

REACTIONS (1)
  - HOT FLUSH [None]
